FAERS Safety Report 24989724 (Version 2)
Quarter: 2025Q1

REPORT INFORMATION
  Report Type: Report from Study
  Country: CO (occurrence: CO)
  Receive Date: 20250220
  Receipt Date: 20250331
  Transmission Date: 20250409
  Serious: Yes (Hospitalization)
  Sender: MYLAN
  Company Number: CO-MYLANLABS-2025M1014670

PATIENT
  Age: 7 Year
  Sex: Female
  Weight: 9 kg

DRUGS (7)
  1. CYSTAGON [Suspect]
     Active Substance: CYSTEAMINE BITARTRATE
     Indication: Cystinosis
     Dosage: 150 MILLIGRAM, Q6H (EVERY 6 HOURS)
     Dates: start: 20231128
  2. CYSTEAMINE HYDROCHLORIDE [Suspect]
     Active Substance: CYSTEAMINE HYDROCHLORIDE
     Indication: Cystinosis
     Dosage: 2 GTT DROPS, Q6H (1 DROP IN BOTH EYES EVERY 6 HOURS)
     Dates: start: 20231018
  3. SODIUM BICARBONATE [Concomitant]
     Active Substance: SODIUM BICARBONATE
     Indication: Renal transplant
     Dosage: 500 MILLIGRAM, BID (EVERY 12 HOURS)
  4. CALCIUM [Concomitant]
     Active Substance: CALCIUM
     Indication: Vitamin supplementation
     Dosage: UNK, QID (50 CC EVERY 6 HOURS)
  5. POTASSIUM GLUCONATE [Concomitant]
     Active Substance: POTASSIUM GLUCONATE
     Indication: Vitamin supplementation
     Dosage: UNK, QD (5 CC PER DAY)
  6. FERROUS SULFATE [Concomitant]
     Active Substance: FERROUS SULFATE
     Indication: Anaemia of chronic disease
     Dosage: 12 GTT DROPS, BID (EVERY 12 HOURS)
  7. FOLIC ACID [Concomitant]
     Active Substance: FOLIC ACID
     Indication: Vitamin supplementation
     Dosage: 3 MILLIGRAM, QD (PER DAY)

REACTIONS (4)
  - Peritoneal dialysis [Not Recovered/Not Resolved]
  - Laboratory test abnormal [Not Recovered/Not Resolved]
  - Amino acid level increased [Unknown]
  - Device leakage [Unknown]

NARRATIVE: CASE EVENT DATE: 20241120
